FAERS Safety Report 4611901-3 (Version None)
Quarter: 2005Q2

REPORT INFORMATION
  Report Type: 
  Country: None (occurrence: None)
  Receive Date: 20050308
  Receipt Date: 20041216
  Transmission Date: 20051028
  Serious: Yes (Other)
  Sender: FDA-Public Use
  Company Number: 2004UW25620

PATIENT
  Age: 60 Year
  Sex: Male
  Weight: 74.842 kg

DRUGS (4)
  1. CRESTOR [Suspect]
     Indication: HYPERCHOLESTEROLAEMIA
     Dosage: 10 MG PO
     Route: 048
     Dates: start: 20041201
  2. DIOVAN [Concomitant]
  3. HYDROCHLOROTHIAZIDE [Concomitant]
  4. POTASSIUM CHLORIDE [Concomitant]

REACTIONS (4)
  - BLOOD POTASSIUM DECREASED [None]
  - CONVULSION [None]
  - GROIN PAIN [None]
  - LOSS OF CONSCIOUSNESS [None]
